FAERS Safety Report 6723739-1 (Version None)
Quarter: 2010Q2

REPORT INFORMATION
  Report Type: 
  Country: None (occurrence: None)
  Receive Date: 20100513
  Receipt Date: 20100507
  Transmission Date: 20101027
  Serious: Yes (Other)
  Sender: FDA-Public Use
  Company Number: FR-PFIZER INC-2010057602

PATIENT
  Age: 65 Year
  Sex: Male

DRUGS (5)
  1. SOLU-MEDROL [Suspect]
     Indication: GLOMERULONEPHRITIS ACUTE
     Dosage: 500 MG, 1X/DAY
     Route: 040
     Dates: start: 20100125, end: 20100127
  2. CORTANCYL [Suspect]
     Indication: GLOMERULONEPHRITIS ACUTE
     Dosage: 80 MG PER DAY
     Route: 048
     Dates: start: 20100128
  3. PRAVASTATIN SODIUM [Concomitant]
     Dosage: UNK
  4. ZYLORIC [Concomitant]
     Dosage: UNK
  5. COTAREG [Concomitant]
     Dosage: 160 MG, UNK
     Dates: end: 20100120

REACTIONS (2)
  - ABNORMAL BEHAVIOUR [None]
  - DIABETES MELLITUS [None]
